FAERS Safety Report 7827387-1 (Version None)
Quarter: 2011Q4

REPORT INFORMATION
  Report Type: 
  Country: None (occurrence: None)
  Receive Date: 20111020
  Receipt Date: 20111011
  Transmission Date: 20120403
  Serious: Yes (Other)
  Sender: FDA-Public Use
  Company Number: US-JNJFOC-20110405140

PATIENT
  Age: 49 Year
  Sex: Female
  Weight: 92.99 kg

DRUGS (13)
  1. EFFEXOR XR [Concomitant]
     Indication: DEPRESSION
     Route: 065
  2. NUCYNTA [Suspect]
     Indication: ANALGESIC THERAPY
     Dosage: EVERY FOUR HOURLY ^PRN^
     Route: 048
     Dates: start: 20110407, end: 20110410
  3. BIOTIN [Concomitant]
     Indication: SUPPLEMENTATION THERAPY
     Route: 065
  4. WELLBUTRIN XL [Concomitant]
     Indication: DEPRESSION
     Route: 065
  5. MOTRIN [Concomitant]
     Indication: PRODUCT USED FOR UNKNOWN INDICATION
     Dosage: TWICE A DAY
     Route: 065
  6. NUCYNTA [Suspect]
     Indication: INTERVERTEBRAL DISC DEGENERATION
     Dosage: EVERY FOUR HOURLY ^PRN^
     Route: 048
     Dates: start: 20110407, end: 20110410
  7. ADDERALL 5 [Concomitant]
     Indication: ATTENTION DEFICIT/HYPERACTIVITY DISORDER
     Dosage: 2 CAPSULES, ONCE A DAY
     Route: 048
  8. ZANTAC [Concomitant]
     Indication: PRODUCT USED FOR UNKNOWN INDICATION
     Route: 065
  9. CLARITIN [Concomitant]
     Indication: SEASONAL ALLERGY
     Route: 065
  10. SYNTHROID [Concomitant]
     Indication: DEPRESSION
     Route: 065
  11. VICODIN [Concomitant]
     Indication: ANALGESIC THERAPY
     Route: 065
  12. UNKNOWN MEDICATION [Concomitant]
     Route: 065
  13. MELOXICAM [Concomitant]
     Indication: PAIN
     Route: 065

REACTIONS (4)
  - HALLUCINATION [None]
  - ABNORMAL BEHAVIOUR [None]
  - PRURITUS [None]
  - VISUAL IMPAIRMENT [None]
